FAERS Safety Report 13765494 (Version 1)
Quarter: 2017Q3

REPORT INFORMATION
  Report Type: Spontaneous
  Country: JP (occurrence: JP)
  Receive Date: 20170718
  Receipt Date: 20170718
  Transmission Date: 20171127
  Serious: Yes (Hospitalization, Other)
  Sender: FDA-Public Use
  Company Number: JP-PFIZER INC-2016589665

PATIENT
  Age: 47 Year
  Sex: Female

DRUGS (6)
  1. CORTRIL [Suspect]
     Active Substance: HYDROCORTISONE
     Dosage: 2 DF, DAILY (1.5 TABLETS IN THE MORNING + 0.5 TABLETS IN THE EVENING)
     Route: 048
     Dates: start: 20120813, end: 20121027
  2. CALONAL [Concomitant]
     Active Substance: ACETAMINOPHEN
     Dosage: 200 MG, AS NEEDED
     Route: 048
  3. CORTRIL [Suspect]
     Active Substance: HYDROCORTISONE
     Dosage: 1 DF, 1X/DAY
     Route: 048
     Dates: start: 20130615, end: 20130620
  4. WARFARIN [Concomitant]
     Active Substance: WARFARIN
     Indication: DEEP VEIN THROMBOSIS
     Dosage: UNK
     Route: 048
  5. CORTRIL [Suspect]
     Active Substance: HYDROCORTISONE
     Dosage: 1.5 DF, DAILY (1 TABLET IN THE MORNING + 0.5 TABLETS IN THE EVENING)
     Route: 048
     Dates: start: 20121110, end: 20130614
  6. CORTRIL [Suspect]
     Active Substance: HYDROCORTISONE
     Indication: SECONDARY ADRENOCORTICAL INSUFFICIENCY
     Dosage: 2 DF, DAILY (1.5 TABLETS IN THE MORNING + 0.5 TABLETS IN THE EVENING)
     Route: 048
     Dates: start: 20120703, end: 20120723

REACTIONS (3)
  - Osteonecrosis [Unknown]
  - Cushing^s syndrome [Unknown]
  - Vascular insufficiency [Unknown]

NARRATIVE: CASE EVENT DATE: 20130219
